FAERS Safety Report 10067445 (Version 1)
Quarter: 2014Q2

REPORT INFORMATION
  Report Type: Spontaneous
  Country: IN (occurrence: None)
  Receive Date: 20140407
  Receipt Date: 20140407
  Transmission Date: 20141212
  Serious: Yes (Other)
  Sender: FDA-Public Use
  Company Number: 2014P1002717

PATIENT
  Age: 25 Year
  Sex: Male

DRUGS (1)
  1. LIDOCAINE / EPINEPHRINE [Suspect]
     Indication: TOOTH EXTRACTION
     Dosage: X1, IRRG

REACTIONS (3)
  - Vision blurred [None]
  - Blindness [None]
  - Pupillary light reflex tests abnormal [None]
